FAERS Safety Report 8839664 (Version 3)
Quarter: 2012Q4

REPORT INFORMATION
  Report Type: 
  Country: DE (occurrence: DE)
  Receive Date: 20121015
  Receipt Date: 20121220
  Transmission Date: 20130627
  Serious: Yes (Life-Threatening, Hospitalization, Other)
  Sender: FDA-Public Use
  Company Number: PHHY2012DE090783

PATIENT
  Age: 71 Year
  Sex: Male
  Weight: 82 kg

DRUGS (9)
  1. GLIVEC [Suspect]
     Indication: CHRONIC MYELOID LEUKAEMIA
     Dosage: 400 mg, per day
     Route: 048
     Dates: start: 200212
  2. GLIVEC [Suspect]
     Dosage: UNK
     Route: 048
  3. EUTHYROX [Concomitant]
     Dosage: 50 ug, per day
     Route: 048
  4. CARVEDILOL [Concomitant]
     Dosage: 12.5 mg, per day
     Route: 048
  5. HCT [Concomitant]
     Dosage: 25 mg, per day
     Route: 048
  6. ZANIPRESS [Concomitant]
     Dosage: 20 mg, UNK
     Route: 048
  7. ZANIPRESS [Concomitant]
     Dosage: 10 mg, UNK
     Route: 048
  8. ACE INHIBITORS [Concomitant]
     Dosage: UNK UKN, UNK
  9. LERCANIDIPINE [Concomitant]
     Dosage: UNK UKN, UNK

REACTIONS (11)
  - Hepatocellular carcinoma [Not Recovered/Not Resolved]
  - Abdominal discomfort [Unknown]
  - Hypophagia [Unknown]
  - Fatigue [Recovering/Resolving]
  - Decreased appetite [Recovering/Resolving]
  - Abdominal pain upper [Recovering/Resolving]
  - Hypertension [Not Recovered/Not Resolved]
  - Prostate cancer [Unknown]
  - Second primary malignancy [Unknown]
  - Hepatic cirrhosis [Unknown]
  - Diarrhoea [Recovered/Resolved]
